FAERS Safety Report 23516280 (Version 1)
Quarter: 2024Q1

REPORT INFORMATION
  Report Type: Spontaneous
  Country: JP (occurrence: JP)
  Receive Date: 20240213
  Receipt Date: 20240213
  Transmission Date: 20240410
  Serious: Yes (Hospitalization, Other)
  Sender: FDA-Public Use
  Company Number: JP-ONO-2024JP002536

PATIENT
  Age: 36 Year
  Sex: Female
  Weight: 37.8 kg

DRUGS (14)
  1. OPDIVO [Suspect]
     Active Substance: NIVOLUMAB
     Indication: Metastatic renal cell carcinoma
     Dosage: 480 MG, Q4W
     Route: 041
     Dates: start: 20230614, end: 20231228
  2. CABOMETYX [Suspect]
     Active Substance: CABOZANTINIB S-MALATE
     Indication: Metastatic renal cell carcinoma
     Dosage: UNK UNK, Q3D
     Route: 048
     Dates: start: 20230614, end: 20240102
  3. NAPROXEN [Concomitant]
     Active Substance: NAPROXEN
     Indication: Product used for unknown indication
     Dosage: 300 MG, Q8H (AFTER BREAKFAST/LUNCH/DINNER)
     Route: 048
  4. PROCHLORPERAZINE MALEATE [Concomitant]
     Active Substance: PROCHLORPERAZINE MALEATE
     Indication: Product used for unknown indication
     Dosage: 15 MG, Q8H (BEFORE BREAKFAST/LUNCH/DINNER)
     Route: 048
     Dates: end: 20240117
  5. REBAMIPIDE [Concomitant]
     Active Substance: REBAMIPIDE
     Indication: Product used for unknown indication
     Dosage: 300 MG, Q8H (AFTER BREAKFAST/LUNCH/DINNER)
     Route: 048
     Dates: end: 20240117
  6. CALCIUM CARBONATE\CHOLECALCIFEROL\MAGNESIUM CARBONATE [Concomitant]
     Active Substance: CALCIUM CARBONATE\CHOLECALCIFEROL\MAGNESIUM CARBONATE
     Indication: Product used for unknown indication
     Dosage: 2 DF, EVERYDAY (AFTER BREAKFAST)
     Route: 048
     Dates: end: 20231222
  7. CALCIUM CARBONATE\CHOLECALCIFEROL\MAGNESIUM CARBONATE [Concomitant]
     Active Substance: CALCIUM CARBONATE\CHOLECALCIFEROL\MAGNESIUM CARBONATE
     Dosage: 1 DF, EVERYDAY
     Route: 048
     Dates: start: 20231223, end: 20240117
  8. OLANZAPINE [Concomitant]
     Active Substance: OLANZAPINE
     Indication: Product used for unknown indication
     Dosage: 5 MG, EVERYDAY (BEFORE BEDTIME)?TABLET, ORALLY DISINTEGRATING
     Route: 048
     Dates: end: 20240117
  9. SYMPROIC [Concomitant]
     Active Substance: NALDEMEDINE
     Indication: Product used for unknown indication
     Dosage: 0.2 MG, EVERYDAY (BEFORE BREAKFAST)
     Route: 048
     Dates: end: 20240117
  10. AMITIZA [Concomitant]
     Active Substance: LUBIPROSTONE
     Indication: Product used for unknown indication
     Dosage: 48 UG, Q12H (AFTER BREAKFAST/DINNER)
     Route: 048
     Dates: end: 20240117
  11. DULOXETINE HYDROCHLORIDE [Concomitant]
     Active Substance: DULOXETINE HYDROCHLORIDE
     Indication: Product used for unknown indication
     Dosage: 20 MG, EVERYDAY (BEFORE BEDTIME)?TABLET, ORALLY DISINTEGRATING
     Route: 048
     Dates: end: 20240117
  12. OXYCODONE [Concomitant]
     Active Substance: OXYCODONE\OXYCODONE HYDROCHLORIDE
     Indication: Product used for unknown indication
     Dosage: 30 MG, Q12H
     Route: 048
     Dates: end: 20240117
  13. OXYCODONE HYDROCHLORIDE [Concomitant]
     Active Substance: OXYCODONE HYDROCHLORIDE
     Indication: Product used for unknown indication
     Dosage: 5 MG, PRN?POWDER (EXCEPT [DPO])
     Route: 048
  14. OXYCODONE [Concomitant]
     Active Substance: OXYCODONE\OXYCODONE HYDROCHLORIDE
     Indication: Product used for unknown indication
     Dosage: UNK
     Dates: start: 20240117

REACTIONS (11)
  - Anaemia [Recovered/Resolved]
  - Cranial nerve paralysis [Unknown]
  - Bulbar palsy [Unknown]
  - CSF glucose decreased [Unknown]
  - Guillain-Barre syndrome [Not Recovered/Not Resolved]
  - Pachymeningitis [Unknown]
  - Dysarthria [Unknown]
  - Malaise [Unknown]
  - Nausea [Unknown]
  - Dysphagia [Unknown]
  - Muscular weakness [Unknown]

NARRATIVE: CASE EVENT DATE: 20240105
